FAERS Safety Report 20210473 (Version 1)
Quarter: 2021Q4

REPORT INFORMATION
  Report Type: Spontaneous
  Country: FR (occurrence: FR)
  Receive Date: 20211221
  Receipt Date: 20211221
  Transmission Date: 20220303
  Serious: Yes (Other)
  Sender: FDA-Public Use
  Company Number: None

PATIENT
  Age: 71 Year
  Sex: Female

DRUGS (2)
  1. METHYLPREDNISOLONE [Suspect]
     Active Substance: METHYLPREDNISOLONE
     Indication: Wrong product administered
     Dosage: 75 MILLIGRAM DAILY; A SINGLE TAKE
     Route: 048
     Dates: start: 20211120
  2. METHYLPREDNISOLONE [Suspect]
     Active Substance: METHYLPREDNISOLONE
     Route: 065

REACTIONS (5)
  - Speech disorder [Recovered/Resolved]
  - Hallucination [Recovered/Resolved]
  - Incorrect dose administered [Recovered/Resolved]
  - Wrong product administered [Recovered/Resolved]
  - Somnolence [Recovered/Resolved]

NARRATIVE: CASE EVENT DATE: 20211120
